FAERS Safety Report 5752702-2 (Version None)
Quarter: 2008Q2

REPORT INFORMATION
  Report Type: 
  Country: None (occurrence: None)
  Receive Date: 20080527
  Receipt Date: 20080527
  Transmission Date: 20081010
  Serious: Yes (Hospitalization)
  Sender: FDA-Public Use
  Company Number: None

PATIENT
  Age: 22 Year
  Sex: Male

DRUGS (3)
  1. ARIPIPRAZOLE [Suspect]
     Indication: BIPOLAR DISORDER
     Dosage: 20MG  DAILY PO
     Route: 048
     Dates: start: 20080215, end: 20080303
  2. QUETIAPINE FUMARATE [Concomitant]
  3. TRAZODONE HCL [Concomitant]

REACTIONS (2)
  - AKATHISIA [None]
  - ENERGY INCREASED [None]
